FAERS Safety Report 9689923 (Version 2)
Quarter: 2013Q4

REPORT INFORMATION
  Report Type: Spontaneous
  Country: US (occurrence: US)
  Receive Date: 20131115
  Receipt Date: 20131202
  Transmission Date: 20140711
  Serious: No
  Sender: FDA-Public Use
  Company Number: US-PFIZER INC-2013324228

PATIENT
  Age: 51 Year
  Sex: Male
  Weight: 70.3 kg

DRUGS (3)
  1. NEURONTIN [Suspect]
     Indication: POST HERPETIC NEURALGIA
     Dosage: 300 MG, 3X/DAY
     Route: 048
     Dates: start: 201211
  2. NEURONTIN [Suspect]
     Dosage: 600 MG, 3X/DAY
     Route: 048
     Dates: end: 201305
  3. FENTANYL [Concomitant]
     Dosage: 50 UG, UNK

REACTIONS (4)
  - Drug effect incomplete [Unknown]
  - Somnolence [Unknown]
  - Memory impairment [Unknown]
  - Feeling abnormal [Unknown]
